FAERS Safety Report 11812609 (Version 1)
Quarter: 2015Q4

REPORT INFORMATION
  Report Type: Report from Study
  Country: US (occurrence: US)
  Receive Date: 20151208
  Receipt Date: 20151208
  Transmission Date: 20160305
  Serious: No
  Sender: FDA-Public Use
  Company Number: US-AMGEN-USASL2015128434

PATIENT
  Age: 8 Year
  Sex: Male

DRUGS (1)
  1. ENBREL [Suspect]
     Active Substance: ETANERCEPT
     Indication: JUVENILE IDIOPATHIC ARTHRITIS
     Dosage: 25 MG, UNK
     Route: 065
     Dates: start: 20150831

REACTIONS (11)
  - Gastrointestinal disorder [Not Recovered/Not Resolved]
  - Nasopharyngitis [Unknown]
  - Constipation [Unknown]
  - Malaise [Unknown]
  - Decreased appetite [Unknown]
  - Endoscopy [Unknown]
  - Breath sounds abnormal [Unknown]
  - Weight gain poor [Unknown]
  - Joint swelling [Unknown]
  - Joint warmth [Unknown]
  - Cast application [Unknown]

NARRATIVE: CASE EVENT DATE: 2015
